FAERS Safety Report 6160164-9 (Version None)
Quarter: 2009Q2

REPORT INFORMATION
  Report Type: 
  Country: None (occurrence: None)
  Receive Date: 20090420
  Receipt Date: 20090410
  Transmission Date: 20091009
  Serious: Yes (Hospitalization)
  Sender: FDA-Public Use
  Company Number: A0779238A

PATIENT
  Age: 51 Year
  Sex: Male
  Weight: 124.5 kg

DRUGS (5)
  1. AVANDIA [Suspect]
     Indication: DIABETES MELLITUS
     Dosage: 4MG PER DAY
     Route: 048
     Dates: start: 20010204, end: 20070601
  2. METFORMIN HCL [Concomitant]
  3. GLYBURIDE [Concomitant]
  4. LOVASTATIN [Concomitant]
  5. NEXIUM [Concomitant]

REACTIONS (6)
  - CARDIAC FAILURE CONGESTIVE [None]
  - CHEST PAIN [None]
  - CORONARY ARTERY DISEASE [None]
  - FATIGUE [None]
  - HYPERTENSION [None]
  - MYOCARDIAL INFARCTION [None]
